FAERS Safety Report 21196773 (Version 1)
Quarter: 2022Q3

REPORT INFORMATION
  Report Type: Spontaneous
  Country: PL (occurrence: PL)
  Receive Date: 20220810
  Receipt Date: 20220810
  Transmission Date: 20221027
  Serious: Yes (Hospitalization)
  Sender: FDA-Public Use
  Company Number: PL-JAZZ-2022-PL-002346

PATIENT
  Age: 18 Year
  Sex: Male

DRUGS (2)
  1. VYXEOS [Suspect]
     Active Substance: CYTARABINE\DAUNORUBICIN
     Indication: Acute myeloid leukaemia refractory
     Dosage: 44 MILLIGRAM/SQ. METER
     Route: 042
     Dates: start: 20220121, end: 20220123
  2. CLADRIBINE [Concomitant]
     Active Substance: CLADRIBINE
     Indication: Product used for unknown indication

REACTIONS (2)
  - Rash [Unknown]
  - Off label use [Unknown]

NARRATIVE: CASE EVENT DATE: 20220121
